FAERS Safety Report 9780569 (Version 3)
Quarter: 2014Q4

REPORT INFORMATION
  Report Type: Report from Study
  Country: US (occurrence: US)
  Receive Date: 20131224
  Receipt Date: 20141020
  Transmission Date: 20150529
  Serious: Yes (Other)
  Sender: FDA-Public Use
  Company Number: US-ROCHE-1288321

PATIENT
  Age: 65 Year
  Sex: Female
  Weight: 57.73 kg

DRUGS (2)
  1. TEMSIROLIMUS [Suspect]
     Active Substance: TEMSIROLIMUS
     Indication: RENAL CELL CARCINOMA
     Dosage: THE DATE OF THE LAST DOSE PRIOR TO SAE:20/MAR/2013?TOTAL ADMINISTERED DOSE 60 MG
     Route: 042
     Dates: start: 20100223
  2. BEVACIZUMAB [Suspect]
     Active Substance: BEVACIZUMAB
     Indication: RENAL CELL CARCINOMA
     Dosage: THE DATE OF THE LAST DOSE PRIOR TO SAE:24/APRIL/2012  , TOTAL ADMINISTERED DOSE- 1146 MG
     Route: 042
     Dates: start: 20100223

REACTIONS (2)
  - Proteinuria [Recovered/Resolved with Sequelae]
  - Atrial fibrillation [Recovered/Resolved]

NARRATIVE: CASE EVENT DATE: 20120326
